FAERS Safety Report 8485120-7 (Version None)
Quarter: 2012Q3

REPORT INFORMATION
  Report Type: 
  Country: None (occurrence: None)
  Receive Date: 20120703
  Receipt Date: 20120620
  Transmission Date: 20120928
  Serious: Yes (Other)
  Sender: FDA-Public Use
  Company Number: BR-AMGEN-BRASP2012019445

PATIENT
  Age: 38 Year
  Sex: Female
  Weight: 71 kg

DRUGS (15)
  1. ENBREL [Suspect]
     Dosage: UNK
     Dates: start: 20111201, end: 20120301
  2. ENBREL [Suspect]
     Dosage: UNK
     Dates: start: 20120301
  3. AMITRIPTYLINE HCL [Concomitant]
     Dosage: 20 MG, UNK
  4. NIMESULIDE [Concomitant]
     Dosage: 100 MG, UNK
  5. HUMIRA [Concomitant]
     Dosage: UNK
  6. ENBREL [Suspect]
     Indication: RHEUMATOID ARTHRITIS
     Dosage: 50 MG, ONCE WEEKLY
     Route: 058
     Dates: start: 20100401, end: 20120606
  7. LOSARTAN POTASSIUM [Concomitant]
     Dosage: 50 MG, UNK
  8. HYDROCHLOROTHIAZDE TAB [Concomitant]
     Dosage: 25 MG, UNK
  9. VITAMIN D [Concomitant]
     Dosage: UNK
  10. LEVOTHYROXINE SODIUM [Concomitant]
     Dosage: 100 MG, UNK
  11. ALENDRONATE SODIUM [Concomitant]
     Dosage: 70 MG, UNK
  12. TRAMADOL HYDROCHLORIDE [Concomitant]
     Dosage: 50 MG, UNK
  13. PREDNISONE [Concomitant]
     Dosage: 20 MG, UNK
  14. ARAVA [Concomitant]
     Dosage: 20 MG, UNK
  15. ATENOLOL [Concomitant]
     Dosage: 25 MG, UNK

REACTIONS (6)
  - OSTEOPOROSIS [None]
  - INJECTION SITE PAIN [None]
  - FOOT DEFORMITY [None]
  - TOOTH DISORDER [None]
  - ARTHRALGIA [None]
  - DRUG INEFFECTIVE [None]
